FAERS Safety Report 6130610-5 (Version None)
Quarter: 2009Q1

REPORT INFORMATION
  Report Type: 
  Country: None (occurrence: None)
  Receive Date: 20090325
  Receipt Date: 20090316
  Transmission Date: 20090719
  Serious: Yes (Other)
  Sender: FDA-Public Use
  Company Number: PHHY2009FR10112

PATIENT

DRUGS (2)
  1. EXELON [Suspect]
  2. EBIXA [Suspect]

REACTIONS (1)
  - HEPATITIS [None]
